FAERS Safety Report 6632353-8 (Version None)
Quarter: 2010Q1

REPORT INFORMATION
  Report Type: 
  Country: None (occurrence: None)
  Receive Date: 20100312
  Receipt Date: 20100303
  Transmission Date: 20100710
  Serious: Yes (Death, Hospitalization, Other)
  Sender: FDA-Public Use
  Company Number: US-AMGEN-QUU386864

PATIENT
  Sex: Male
  Weight: 48.6 kg

DRUGS (9)
  1. NPLATE [Suspect]
     Indication: IDIOPATHIC THROMBOCYTOPENIC PURPURA
     Route: 058
     Dates: start: 20090209, end: 20090410
  2. CORTICOSTEROIDS [Concomitant]
     Dates: start: 20090119, end: 20090302
  3. REQUIP [Concomitant]
  4. CAPTOPRIL [Concomitant]
     Route: 048
  5. IRON [Concomitant]
  6. ACTONEL [Concomitant]
  7. CALCIUM CARBONATE [Concomitant]
  8. K-DUR [Concomitant]
  9. LASIX [Concomitant]

REACTIONS (15)
  - ACUTE MYOCARDIAL INFARCTION [None]
  - CARDIOPULMONARY FAILURE [None]
  - ENCEPHALOPATHY [None]
  - HYPOGLYCAEMIA [None]
  - HYPOTENSION [None]
  - IMMUNOSUPPRESSION [None]
  - JAUNDICE CHOLESTATIC [None]
  - LEUKOCYTOSIS [None]
  - LOSS OF CONSCIOUSNESS [None]
  - MALNUTRITION [None]
  - PERICARDIAL EFFUSION [None]
  - PERICARDITIS TUBERCULOUS [None]
  - PLEURAL EFFUSION [None]
  - PNEUMONIA [None]
  - SEPSIS [None]
